FAERS Safety Report 12420080 (Version 1)
Quarter: 2016Q2

REPORT INFORMATION
  Report Type: Spontaneous
  Country: CN (occurrence: CN)
  Receive Date: 20160531
  Receipt Date: 20160531
  Transmission Date: 20160815
  Serious: Yes (Hospitalization)
  Sender: FDA-Public Use
  Company Number: CN-G+W LABS-GW2016CN000030

PATIENT
  Age: 28 Year
  Sex: Male

DRUGS (2)
  1. AMANTADINE HYDROCHLORIDE. [Suspect]
     Active Substance: AMANTADINE HYDROCHLORIDE
     Indication: NASOPHARYNGITIS
     Dosage: 100 MG, TWICE DAILY
     Route: 065
  2. ACETAMINOPHEN. [Suspect]
     Active Substance: ACETAMINOPHEN
     Indication: NASOPHARYNGITIS
     Dosage: 250 MG, TWICE  A DAY
     Route: 065

REACTIONS (6)
  - Hallucination, visual [None]
  - Anxiety [None]
  - Delusion [None]
  - Hallucination, auditory [None]
  - Substance-induced psychotic disorder [Recovered/Resolved]
  - Persecutory delusion [None]
